FAERS Safety Report 8837514 (Version 1)
Quarter: 2012Q4

REPORT INFORMATION
  Report Type: 
  Country: US (occurrence: US)
  Receive Date: 20121012
  Receipt Date: 20121012
  Transmission Date: 20130627
  Serious: Yes (Hospitalization, Other)
  Sender: FDA-Public Use
  Company Number: US-GENZYME-CLOF-1002338

PATIENT
  Sex: Female
  Weight: 23.2 kg

DRUGS (11)
  1. CLOLAR [Suspect]
     Indication: LYMPHOCYTIC LEUKAEMIA
     Dosage: 30 mg/m2, UNK, days 29-33
     Route: 042
     Dates: start: 20120813, end: 20120817
  2. CYCLOPHOSPHAMIDE [Suspect]
     Indication: LYMPHOCYTIC LEUKAEMIA
     Dosage: 940 mg, UNK, on day 1
     Route: 042
     Dates: start: 20120813
  3. CYCLOPHOSPHAMIDE [Suspect]
     Dosage: 396 mg, qdx5, on days 29-33
     Route: 042
     Dates: start: 20120813, end: 20120817
  4. CYTARABINE [Suspect]
     Indication: LYMPHOCYTIC LEUKAEMIA
     Dosage: 75 mg/m2, UNK, days 1-4 and 8-11
     Route: 042
  5. VP-16 [Suspect]
     Indication: LYMPHOCYTIC LEUKAEMIA
     Dosage: 100 mg/m2, UNK, days 29-33
     Route: 042
     Dates: start: 20120813, end: 20120817
  6. MERCAPTOPURINE [Suspect]
     Indication: LYMPHOCYTIC LEUKAEMIA
     Dosage: 60 mg/m2, UNK, days 1-14
     Route: 048
  7. METHOTREXATE [Suspect]
     Indication: LYMPHOCYTIC LEUKAEMIA
     Dosage: UNK, on days 1, 8, 15, 22
     Route: 037
     Dates: end: 20120724
  8. PEG-ASPARAGINASE [Suspect]
     Indication: LYMPHOCYTIC LEUKAEMIA
     Dosage: 2500 iu/m2, UNK, day 15
     Route: 042
     Dates: start: 20120813
  9. PEG-ASPARAGINASE [Suspect]
     Dosage: 2500 iu/m2, UNK, day 43
     Route: 042
     Dates: start: 20120813, end: 20120828
  10. VINCRISTINE SULFATE [Suspect]
     Indication: LYMPHOCYTIC LEUKAEMIA
     Dosage: 1.5 mg/m2, UNK, days 15 and 22
     Route: 042
  11. VINCRISTINE SULFATE [Suspect]
     Dosage: 1.5 mg/m2, UNK, days 43 and 50
     Route: 042
     Dates: start: 20120813, end: 20120828

REACTIONS (5)
  - Encephalopathy [Recovered/Resolved]
  - Device related infection [Recovered/Resolved]
  - Febrile neutropenia [Unknown]
  - Diarrhoea [Unknown]
  - Thrombocytopenia [Recovered/Resolved]
